FAERS Safety Report 9416376 (Version 1)
Quarter: 2013Q3

REPORT INFORMATION
  Report Type: Spontaneous
  Country: US (occurrence: None)
  Receive Date: 20130723
  Receipt Date: 20130723
  Transmission Date: 20140515
  Serious: Yes (Life-Threatening)
  Sender: FDA-Public Use
  Company Number: None

PATIENT
  Age: 68 Year
  Sex: Male
  Weight: 71.67 kg

DRUGS (9)
  1. ARCAPTA [Suspect]
     Indication: CHRONIC OBSTRUCTIVE PULMONARY DISEASE
     Dosage: STRENGTH:  75?QUANTITY:  1 PUFF DAILY?FREQUENCY:  MORNING?HOW:  MOUTH?
     Route: 048
     Dates: start: 201301, end: 201307
  2. ADVAIR [Concomitant]
  3. SPIRVA [Concomitant]
  4. PREDNISONE [Concomitant]
  5. ALPRAZOLAM [Concomitant]
  6. TRAMOL [Concomitant]
  7. VITAMIN D [Concomitant]
  8. VITAMIN C [Concomitant]
  9. FISH OIL [Concomitant]

REACTIONS (4)
  - Chronic obstructive pulmonary disease [None]
  - Palpitations [None]
  - Headache [None]
  - Vomiting [None]
